FAERS Safety Report 23440811 (Version 1)
Quarter: 2024Q1

REPORT INFORMATION
  Report Type: Spontaneous
  Country: CN (occurrence: CN)
  Receive Date: 20240125
  Receipt Date: 20240125
  Transmission Date: 20240410
  Serious: Yes (Death, Other)
  Sender: FDA-Public Use
  Company Number: CN-AMGEN-CHNSP2024013110

PATIENT
  Age: 2 Year
  Sex: Male
  Weight: 9 kg

DRUGS (1)
  1. FILGRASTIM [Suspect]
     Active Substance: FILGRASTIM
     Indication: Infantile genetic agranulocytosis
     Dosage: 0.3-0.5 UG/KG
     Route: 065

REACTIONS (1)
  - Pulmonary haemorrhage [Fatal]
